FAERS Safety Report 14975103 (Version 1)
Quarter: 2018Q2

REPORT INFORMATION
  Report Type: Report from Study
  Country: ZA (occurrence: ZA)
  Receive Date: 20180605
  Receipt Date: 20180605
  Transmission Date: 20180711
  Serious: Yes (Hospitalization)
  Sender: FDA-Public Use
  Company Number: PHHY2018ZA014366

PATIENT
  Sex: Female

DRUGS (2)
  1. CO-MIGROBEN [Suspect]
     Active Substance: HYDROCHLOROTHIAZIDE\VALSARTAN
     Indication: HYPERTENSION
     Dosage: UNK ((HYDROCHLOROTHIAZIDE 100 MG, VALSARTAN 12.5 MG)
     Route: 048
     Dates: start: 201712, end: 201805
  2. GALVUS [Suspect]
     Active Substance: VILDAGLIPTIN
     Indication: DIABETES MELLITUS
     Dosage: 50 MG, UNK
     Route: 048
     Dates: start: 201805

REACTIONS (2)
  - Diabetes mellitus [Unknown]
  - Blood pressure abnormal [Unknown]
